FAERS Safety Report 7180707-6 (Version None)
Quarter: 2010Q4

REPORT INFORMATION
  Report Type: 
  Country: None (occurrence: None)
  Receive Date: 20101221
  Receipt Date: 20101117
  Transmission Date: 20110411
  Serious: Yes (Death, Other)
  Sender: FDA-Public Use
  Company Number: US-BAXTER-2009BH018700

PATIENT
  Age: 79 Year
  Sex: Female
  Weight: 68 kg

DRUGS (13)
  1. HEPARIN SODIUM INJECTION [Suspect]
     Indication: PULMONARY EMBOLISM
     Route: 040
     Dates: start: 20071117
  2. HEPARIN SODIUM INJECTION [Suspect]
     Indication: ANTICOAGULANT THERAPY
     Route: 040
     Dates: start: 20071117
  3. HEPARIN SODIUM INJECTION [Suspect]
     Route: 040
     Dates: start: 20071114, end: 20071114
  4. HEPARIN SODIUM INJECTION [Suspect]
     Route: 040
     Dates: start: 20071114, end: 20071114
  5. HEPARIN SODIUM INJECTION [Suspect]
     Route: 041
     Dates: start: 20071114
  6. HEPARIN SODIUM INJECTION [Suspect]
     Route: 041
     Dates: start: 20071114
  7. LOVENOX [Suspect]
     Indication: PRODUCT USED FOR UNKNOWN INDICATION
     Route: 058
     Dates: start: 20071114, end: 20071115
  8. NORVASC [Concomitant]
     Indication: PRODUCT USED FOR UNKNOWN INDICATION
     Route: 065
  9. PROTONIX [Concomitant]
     Indication: PRODUCT USED FOR UNKNOWN INDICATION
     Route: 065
  10. KLOR-CON [Concomitant]
     Indication: PRODUCT USED FOR UNKNOWN INDICATION
     Route: 065
  11. CYPROHEPTADINE HCL [Concomitant]
     Indication: PRODUCT USED FOR UNKNOWN INDICATION
     Route: 065
  12. COLACE [Concomitant]
     Indication: PRODUCT USED FOR UNKNOWN INDICATION
     Route: 065
  13. LEVAQUIN [Concomitant]
     Indication: PRODUCT USED FOR UNKNOWN INDICATION
     Route: 065

REACTIONS (9)
  - CARDIAC FAILURE CONGESTIVE [None]
  - CARDIO-RESPIRATORY ARREST [None]
  - HYPOPERFUSION [None]
  - HYPOTENSION [None]
  - MYOCARDIAL INFARCTION [None]
  - PULMONARY EMBOLISM [None]
  - RESPIRATORY DISTRESS [None]
  - TACHYCARDIA [None]
  - THROMBOCYTOPENIA [None]
